FAERS Safety Report 21238542 (Version 2)
Quarter: 2022Q3

REPORT INFORMATION
  Report Type: Report from Study
  Country: GR (occurrence: GR)
  Receive Date: 20220822
  Receipt Date: 20220921
  Transmission Date: 20221027
  Serious: Yes (Death, Hospitalization, Other)
  Sender: FDA-Public Use
  Company Number: GR-ABBVIE-22K-066-4479448-00

PATIENT
  Age: 86 Year
  Sex: Female
  Weight: 60 kg

DRUGS (7)
  1. AZACITIDINE [Suspect]
     Active Substance: AZACITIDINE
     Indication: Acute myeloid leukaemia
     Dosage: 130 MILLIGRAM
     Route: 058
     Dates: start: 20220620, end: 20220626
  2. VENETOCLAX [Suspect]
     Active Substance: VENETOCLAX
     Indication: Acute myeloid leukaemia
     Dosage: 400 MILLIGRAM, QD
     Route: 048
     Dates: start: 20220620, end: 20220629
  3. ESCITALOPRAM [Concomitant]
     Active Substance: ESCITALOPRAM OXALATE
     Indication: Parkinson^s disease
     Dosage: 20 MILLIGRAM, QD
     Route: 048
     Dates: end: 20220715
  4. RIVASTIGMINE [Concomitant]
     Active Substance: RIVASTIGMINE
     Indication: Parkinson^s disease
     Dosage: 9.5MG
     Route: 048
     Dates: end: 20220715
  5. GLICLAZIDE [Concomitant]
     Active Substance: GLICLAZIDE
     Indication: Diabetes mellitus
     Dosage: 60 MILLIGRAM, QD
     Route: 048
     Dates: end: 20220715
  6. VALSARTAN [Concomitant]
     Active Substance: VALSARTAN
     Indication: Hypertension
     Dosage: 160+12.5MG
     Route: 048
     Dates: end: 20220715
  7. OMEPRAZOLE [Concomitant]
     Active Substance: OMEPRAZOLE
     Indication: Gastric disorder
     Dosage: 20 MILLIGRAM, QD
     Route: 048
     Dates: end: 20220715

REACTIONS (4)
  - Pneumonia [Fatal]
  - Respiratory failure [Unknown]
  - Pyrexia [Unknown]
  - Fraction of inspired oxygen [Unknown]

NARRATIVE: CASE EVENT DATE: 20220713
